FAERS Safety Report 16648862 (Version 1)
Quarter: 2019Q3

REPORT INFORMATION
  Report Type: Spontaneous
  Country: DE (occurrence: DE)
  Receive Date: 20190730
  Receipt Date: 20190730
  Transmission Date: 20191004
  Serious: Yes (Other)
  Sender: FDA-Public Use
  Company Number: DE-ELI_LILLY_AND_COMPANY-DE201907011929

PATIENT
  Age: 51 Year
  Sex: Female

DRUGS (1)
  1. PEMETREXED. [Suspect]
     Active Substance: PEMETREXED
     Indication: LUNG ADENOCARCINOMA STAGE IV
     Dosage: 500 MG/M2, EVERY 21 DAYS
     Route: 042
     Dates: start: 201703, end: 201707

REACTIONS (2)
  - Malignant neoplasm progression [Unknown]
  - Lung adenocarcinoma stage IV [Unknown]

NARRATIVE: CASE EVENT DATE: 201707
